FAERS Safety Report 7312867-8 (Version None)
Quarter: 2011Q1

REPORT INFORMATION
  Report Type: 
  Country: None (occurrence: None)
  Receive Date: 20110224
  Receipt Date: 20110214
  Transmission Date: 20110831
  Serious: Yes (Life-Threatening, Other)
  Sender: FDA-Public Use
  Company Number: FR-RB-022861-11

PATIENT
  Sex: Male

DRUGS (2)
  1. SUBUTEX [Suspect]
     Indication: PRODUCT USED FOR UNKNOWN INDICATION
     Dosage: VARIABLE DOSES PUT IN COFFEE OVER TIME.
     Route: 048
     Dates: end: 20070101
  2. LEXOMIL [Suspect]
     Indication: PRODUCT USED FOR UNKNOWN INDICATION
     Dosage: AMOUNT PUT IN COFFEE UNKNOWN.
     Route: 048
     Dates: end: 20070101

REACTIONS (5)
  - FATIGUE [None]
  - INTENTIONAL SELF-INJURY [None]
  - MALAISE [None]
  - LOSS OF CONSCIOUSNESS [None]
  - POISONING [None]
